FAERS Safety Report 16546377 (Version 1)
Quarter: 2019Q3

REPORT INFORMATION
  Report Type: Spontaneous
  Country: US (occurrence: US)
  Receive Date: 20190709
  Receipt Date: 20190709
  Transmission Date: 20191004
  Serious: No
  Sender: FDA-Public Use
  Company Number: US-ASTELLAS-2018US042930

PATIENT
  Age: 74 Year
  Sex: Female

DRUGS (3)
  1. MYRBETRIQ [Suspect]
     Active Substance: MIRABEGRON
     Dosage: UNK UNK, UNKNOWN FREQ.
     Route: 048
     Dates: start: 20181005
  2. MYRBETRIQ [Suspect]
     Active Substance: MIRABEGRON
     Indication: HYPERTONIC BLADDER
     Dosage: 1 DF (PILL), ONCE DAILY
     Route: 048
  3. MYRBETRIQ [Suspect]
     Active Substance: MIRABEGRON
     Dosage: 3 DF (PILL), ONCE DAILY
     Route: 048
     Dates: start: 20180927, end: 20180929

REACTIONS (2)
  - Dizziness [Recovered/Resolved]
  - Nausea [Recovered/Resolved]

NARRATIVE: CASE EVENT DATE: 20180928
